FAERS Safety Report 12923557 (Version 1)
Quarter: 2016Q4

REPORT INFORMATION
  Report Type: Spontaneous
  Country: HR (occurrence: HR)
  Receive Date: 20161109
  Receipt Date: 20161109
  Transmission Date: 20170207
  Serious: Yes (Hospitalization, Other)
  Sender: FDA-Public Use
  Company Number: HR-TEVA-708514ACC

PATIENT
  Sex: Female

DRUGS (2)
  1. IBUPROFEN PLIVA [Suspect]
     Active Substance: IBUPROFEN
     Route: 048
     Dates: start: 20160823
  2. NORMABEL [Suspect]
     Active Substance: DIAZEPAM
     Route: 048
     Dates: start: 20160823

REACTIONS (5)
  - Suicide attempt [Unknown]
  - Intentional overdose [Unknown]
  - Somnolence [Unknown]
  - Skin injury [Unknown]
  - Mucous membrane disorder [Unknown]

NARRATIVE: CASE EVENT DATE: 20160823
